FAERS Safety Report 6264342-X (Version None)
Quarter: 2009Q3

REPORT INFORMATION
  Report Type: 
  Country: None (occurrence: None)
  Receive Date: 20090710
  Receipt Date: 20090701
  Transmission Date: 20100115
  Serious: Yes (Hospitalization)
  Sender: FDA-Public Use
  Company Number: A0795017A

PATIENT
  Age: 62 Year
  Sex: Male

DRUGS (7)
  1. ARIXTRA [Suspect]
     Indication: PULMONARY EMBOLISM
     Dosage: 7.5MG PER DAY
     Route: 058
     Dates: start: 20090101
  2. LASIX [Concomitant]
  3. SLOW-K [Concomitant]
  4. SOTALOL HYDROCHLORIDE [Concomitant]
  5. COREG [Concomitant]
  6. PAROXETINE HCL [Concomitant]
  7. LISINOPRIL [Concomitant]

REACTIONS (9)
  - ARTERIAL HAEMORRHAGE [None]
  - ARTHRALGIA [None]
  - DIAGNOSTIC PROCEDURE [None]
  - DYSPNOEA [None]
  - HAEMOGLOBIN DECREASED [None]
  - HAEMORRHAGE [None]
  - LOCAL SWELLING [None]
  - NERVE INJURY [None]
  - PAIN IN EXTREMITY [None]
